FAERS Safety Report 4422917-4 (Version None)
Quarter: 2004Q3

REPORT INFORMATION
  Report Type: 
  Country: None (occurrence: None)
  Receive Date: 20040804
  Receipt Date: 20040709
  Transmission Date: 20050211
  Serious: Yes (Hospitalization, Other)
  Sender: FDA-Public Use
  Company Number: USA040157384

PATIENT
  Age: 57 Year
  Sex: Female

DRUGS (5)
  1. FORTEO [Suspect]
     Indication: OSTEOPOROSIS
     Dates: start: 20040101
  2. CITRACAL (CALCIUM CITRATE) [Concomitant]
  3. PERIACTIN [Concomitant]
  4. PLAVIX [Concomitant]
  5. PREMARIN [Concomitant]

REACTIONS (6)
  - FALL [None]
  - HIP FRACTURE [None]
  - LOSS OF CONSCIOUSNESS [None]
  - NAUSEA [None]
  - PAIN [None]
  - PAIN IN EXTREMITY [None]
